FAERS Safety Report 15403917 (Version 1)
Quarter: 2018Q3

REPORT INFORMATION
  Report Type: Report from Study
  Country: IT (occurrence: IT)
  Receive Date: 20180919
  Receipt Date: 20180919
  Transmission Date: 20181010
  Serious: Yes (Hospitalization)
  Sender: FDA-Public Use
  Company Number: IT-MYLANLABS-2018M1068257

PATIENT
  Age: 48 Year
  Sex: Male

DRUGS (1)
  1. CANDESARTAN. [Suspect]
     Active Substance: CANDESARTAN
     Indication: HYPERTENSION
     Dosage: 4 MG, QD
     Route: 048
     Dates: start: 20180411

REACTIONS (3)
  - Pharyngeal oedema [Unknown]
  - Dysphagia [Unknown]
  - Myalgia [Unknown]

NARRATIVE: CASE EVENT DATE: 20180411
